FAERS Safety Report 12683970 (Version 2)
Quarter: 2016Q3

REPORT INFORMATION
  Report Type: Spontaneous
  Country: FR (occurrence: FR)
  Receive Date: 20160825
  Receipt Date: 20160914
  Transmission Date: 20161109
  Serious: Yes (Other)
  Sender: FDA-Public Use
  Company Number: FR-PFIZER INC-2016395619

PATIENT
  Age: 77 Year
  Sex: Female
  Weight: 52 kg

DRUGS (4)
  1. IXPRIM [Concomitant]
     Active Substance: ACETAMINOPHEN\TRAMADOL HYDROCHLORIDE
     Indication: ANALGESIC THERAPY
     Dosage: UNK, 3X/DAY
     Route: 048
     Dates: start: 201601
  2. CELEBREX [Suspect]
     Active Substance: CELECOXIB
     Indication: OSTEOARTHRITIS
     Dosage: 200 MG, 2X/DAY
     Dates: start: 201605
  3. ASPEGIC [Concomitant]
     Active Substance: ASPIRIN DL-LYSINE
     Indication: ARTHRALGIA
  4. DOLIPRANE [Concomitant]
     Active Substance: ACETAMINOPHEN
     Indication: ARTHRALGIA

REACTIONS (4)
  - Dry mouth [Recovering/Resolving]
  - Fall [Unknown]
  - Hip fracture [Unknown]
  - Pain [Unknown]

NARRATIVE: CASE EVENT DATE: 201605
